FAERS Safety Report 6042189-7 (Version None)
Quarter: 2009Q1

REPORT INFORMATION
  Report Type: 
  Country: None (occurrence: None)
  Receive Date: 20090116
  Receipt Date: 20090107
  Transmission Date: 20090719
  Serious: Yes (Other)
  Sender: FDA-Public Use
  Company Number: JP-AVENTIS-200910041JP

PATIENT
  Age: 78 Year
  Sex: Male

DRUGS (2)
  1. ALLEGRA                            /01314201/ [Suspect]
     Route: 048
     Dates: start: 20081027, end: 20081215
  2. LAMISIL [Suspect]
     Route: 048
     Dates: start: 20081027, end: 20090101

REACTIONS (3)
  - ALANINE AMINOTRANSFERASE INCREASED [None]
  - ASPARTATE AMINOTRANSFERASE INCREASED [None]
  - HEPATIC FUNCTION ABNORMAL [None]
